FAERS Safety Report 9403243 (Version 2)
Quarter: 2013Q3

REPORT INFORMATION
  Report Type: Report from Study
  Country: DE (occurrence: TR)
  Receive Date: 20130716
  Receipt Date: 20130722
  Transmission Date: 20140515
  Serious: Yes (Death, Hospitalization)
  Sender: FDA-Public Use
  Company Number: DE-ACTELION-A-US2013-85797

PATIENT
  Age: 16 Year
  Sex: Female

DRUGS (3)
  1. VENTAVIS [Suspect]
     Indication: ATRIAL SEPTAL DEFECT
     Dosage: UNK, Q4HRS
     Route: 055
     Dates: start: 20130117, end: 20130706
  2. VENTAVIS [Suspect]
     Indication: ATRIAL SEPTAL DEFECT
  3. BOSENTAN [Concomitant]

REACTIONS (4)
  - Pulmonary arterial hypertension [Fatal]
  - Cardiac arrest [Fatal]
  - Off label use [Unknown]
  - Off label use [Unknown]
